FAERS Safety Report 7945691-3 (Version None)
Quarter: 2011Q4

REPORT INFORMATION
  Report Type: 
  Country: None (occurrence: None)
  Receive Date: 20111129
  Receipt Date: 20111122
  Transmission Date: 20120403
  Serious: Yes (Hospitalization)
  Sender: FDA-Public Use
  Company Number: FR-PFIZER INC-2011096574

PATIENT
  Age: 65 Year
  Sex: Male

DRUGS (10)
  1. IMOVANE [Suspect]
     Dosage: UNK
     Route: 048
     Dates: end: 20110223
  2. TEMODAL [Suspect]
     Dosage: UNK
     Route: 048
     Dates: start: 20110101, end: 20110223
  3. FUROSEMIDE [Suspect]
     Dosage: UNK
     Route: 048
     Dates: start: 20110211, end: 20110224
  4. KEPPRA [Suspect]
     Indication: CONVULSION
     Dosage: UNK
     Route: 048
     Dates: start: 20101001, end: 20110303
  5. POTASSIUM CHLORIDE [Concomitant]
  6. MEDROL [Suspect]
     Indication: CONVULSION
     Dosage: UNK
     Route: 048
     Dates: start: 20101001
  7. DOMPERIDONE [Suspect]
     Dosage: UNK
     Route: 048
     Dates: start: 20110201, end: 20110224
  8. ATACAND [Suspect]
     Route: 048
  9. NEXIUM [Suspect]
     Dosage: UNK
     Route: 048
     Dates: start: 20101001, end: 20110223
  10. ATENOLOL [Suspect]
     Route: 048

REACTIONS (3)
  - HEPATIC ENZYME INCREASED [None]
  - DECREASED APPETITE [None]
  - JAUNDICE [None]
